FAERS Safety Report 19457180 (Version 1)
Quarter: 2021Q2

REPORT INFORMATION
  Report Type: Spontaneous
  Country: US (occurrence: US)
  Receive Date: 20210624
  Receipt Date: 20210624
  Transmission Date: 20210717
  Serious: No
  Sender: FDA-Public Use
  Company Number: US-DECIPHERA PHARMACEUTICALS LLC-2021US000188

PATIENT
  Age: 84 Year
  Sex: Female

DRUGS (1)
  1. QINLOCK [Suspect]
     Active Substance: RIPRETINIB
     Indication: GASTROINTESTINAL STROMAL TUMOUR
     Dosage: 150 MILLIGRAM, QD
     Route: 048
     Dates: start: 20210222

REACTIONS (5)
  - Dry mouth [Unknown]
  - Joint swelling [Unknown]
  - Blood pressure increased [Unknown]
  - Bone pain [Unknown]
  - Pruritus [Unknown]

NARRATIVE: CASE EVENT DATE: 20210228
